FAERS Safety Report 5496653-X (Version None)
Quarter: 2007Q4

REPORT INFORMATION
  Report Type: 
  Country: None (occurrence: None)
  Receive Date: 20071025
  Receipt Date: 20071018
  Transmission Date: 20080405
  Serious: Yes (Other)
  Sender: FDA-Public Use
  Company Number: US-BAYER-200713397BCC

PATIENT
  Age: 80 Year
  Sex: Female
  Weight: 59 kg

DRUGS (4)
  1. ASPIRIN [Suspect]
     Indication: ISCHAEMIC HEART DISEASE PROPHYLAXIS
     Dosage: TOTAL DAILY DOSE: 81 MG  UNIT DOSE: 81 MG
     Route: 048
  2. DIABETES MEDICATION [Concomitant]
  3. TOPROL-XL [Concomitant]
  4. EYE VITAMINS [Concomitant]

REACTIONS (4)
  - CEREBROVASCULAR ACCIDENT [None]
  - MACULAR DEGENERATION [None]
  - SPEECH DISORDER [None]
  - VISUAL FIELD DEFECT [None]
